FAERS Safety Report 5058119-0 (Version None)
Quarter: 2006Q3

REPORT INFORMATION
  Report Type: 
  Country: None (occurrence: None)
  Receive Date: 20060721
  Receipt Date: 20060628
  Transmission Date: 20061208
  Serious: Yes (Hospitalization)
  Sender: FDA-Public Use
  Company Number: FR-GLAXOSMITHKLINE-B0429132A

PATIENT
  Age: 43 Year
  Sex: Female

DRUGS (8)
  1. AUGMENTIN '125' [Suspect]
     Indication: FEBRILE INFECTION
     Route: 065
     Dates: start: 20060507, end: 20060515
  2. CLINOMEL [Suspect]
     Route: 065
     Dates: start: 20060502, end: 20060515
  3. CYMEVAN [Concomitant]
     Route: 065
     Dates: start: 20060504, end: 20060509
  4. FOSPHENYTOIN SODIUM [Concomitant]
     Indication: CONVULSION
     Dosage: 3UNIT PER DAY
     Route: 058
     Dates: start: 20060430, end: 20060501
  5. ACETAMINOPHEN [Concomitant]
     Indication: BACTERIAL INFECTION
     Dosage: 1G THREE TIMES PER DAY
     Route: 065
     Dates: end: 20060504
  6. KEPPRA [Concomitant]
     Indication: EPILEPSY
     Route: 065
  7. CORTICOIDS [Concomitant]
     Indication: EPILEPSY
     Route: 065
  8. BACTRIM [Concomitant]
     Route: 065
     Dates: start: 20060401

REACTIONS (4)
  - BLOOD ALKALINE PHOSPHATASE INCREASED [None]
  - GAMMA-GLUTAMYLTRANSFERASE INCREASED [None]
  - HEPATITIS CHOLESTATIC [None]
  - HEPATITIS TOXIC [None]
